FAERS Safety Report 11889035 (Version 1)
Quarter: 2016Q1

REPORT INFORMATION
  Report Type: Spontaneous
  Country: US (occurrence: US)
  Receive Date: 20160105
  Receipt Date: 20160105
  Transmission Date: 20160526
  Serious: No
  Sender: FDA-Public Use
  Company Number: US-PFIZER INC-2015445158

PATIENT
  Age: 62 Year
  Sex: Female
  Weight: 64.41 kg

DRUGS (5)
  1. BABY ASPIRIN [Concomitant]
     Active Substance: ASPIRIN
     Indication: CARDIAC DISORDER
     Dosage: 81 MG, UNK
  2. LEVOTHYROXINE. [Concomitant]
     Active Substance: LEVOTHYROXINE
     Indication: THYROID DISORDER
     Dosage: 88 UG, 1X/DAY (88 MCG 1 TABLET EVERY MORNING)
  3. SERTRALINE HCL [Suspect]
     Active Substance: SERTRALINE HYDROCHLORIDE
     Indication: ANXIETY
     Dosage: 50 MG, UNK
  4. SERTRALINE HCL [Suspect]
     Active Substance: SERTRALINE HYDROCHLORIDE
     Dosage: 75 MG, 1X/DAY (ONCE A DAY IN EVENING)
     Dates: start: 20151212
  5. CALCIUM [Concomitant]
     Active Substance: CALCIUM
     Dosage: (OCCASIONALLY)

REACTIONS (4)
  - Oropharyngeal pain [Not Recovered/Not Resolved]
  - Intentional product use issue [Unknown]
  - Drug ineffective [Unknown]
  - Dysgeusia [Not Recovered/Not Resolved]

NARRATIVE: CASE EVENT DATE: 20151212
